FAERS Safety Report 6767357-8 (Version None)
Quarter: 2010Q2

REPORT INFORMATION
  Report Type: 
  Country: None (occurrence: None)
  Receive Date: 20100614
  Receipt Date: 20100527
  Transmission Date: 20101027
  Serious: No
  Sender: FDA-Public Use
  Company Number: US-BAYER-201016114BCC

PATIENT
  Age: 16 Year
  Sex: Female
  Weight: 48 kg

DRUGS (2)
  1. ALEVE (CAPLET) [Suspect]
     Indication: DRUG USE FOR UNKNOWN INDICATION
     Dosage: TOOK 9 OT 11 ALEVE
     Route: 048
     Dates: start: 20100527
  2. PAIN MEDICATION [Concomitant]
     Route: 065

REACTIONS (1)
  - NO ADVERSE EVENT [None]
